FAERS Safety Report 11021514 (Version 2)
Quarter: 2016Q4

REPORT INFORMATION
  Report Type: Spontaneous
  Country: BR (occurrence: BR)
  Receive Date: 20150413
  Receipt Date: 20161214
  Transmission Date: 20170206
  Serious: Yes (Hospitalization, Other)
  Sender: FDA-Public Use
  Company Number: BR-SA-2015SA045898

PATIENT
  Age: 56 Year
  Sex: Male
  Weight: 66 kg

DRUGS (2)
  1. SOLOSTAR [Concomitant]
     Active Substance: DEVICE
     Indication: DEVICE THERAPY
     Dates: start: 2010
  2. LANTUS SOLOSTAR [Suspect]
     Active Substance: INSULIN GLARGINE
     Indication: DIABETES MELLITUS
     Route: 058
     Dates: start: 2010

REACTIONS (7)
  - Pyrexia [Recovering/Resolving]
  - Cerebrovascular accident [Recovering/Resolving]
  - Sluggishness [Recovering/Resolving]
  - Aphasia [Recovering/Resolving]
  - Lung infection [Recovering/Resolving]
  - Syncope [Recovering/Resolving]
  - Abasia [Unknown]

NARRATIVE: CASE EVENT DATE: 20130227
